FAERS Safety Report 7136187-X (Version None)
Quarter: 2010Q4

REPORT INFORMATION
  Report Type: 
  Country: None (occurrence: None)
  Receive Date: 20101206
  Receipt Date: 20101124
  Transmission Date: 20110411
  Serious: Yes (Hospitalization)
  Sender: FDA-Public Use
  Company Number: US-BIOGENIDEC-2010BI035711

PATIENT
  Age: 64 Year
  Sex: Female

DRUGS (8)
  1. TYSABRI [Suspect]
     Indication: CROHN'S DISEASE
     Route: 042
     Dates: start: 20090318, end: 20100222
  2. TYSABRI [Suspect]
     Route: 042
     Dates: start: 20100823
  3. MULTI-VITAMINS [Concomitant]
  4. VITAMIN D [Concomitant]
  5. VITAMIN E [Concomitant]
  6. CALCIUM [Concomitant]
  7. FISH OIL [Concomitant]
  8. IRON [Concomitant]

REACTIONS (1)
  - THYROID ADENOMA [None]
